FAERS Safety Report 8770885 (Version 4)
Quarter: 2012Q4

REPORT INFORMATION
  Report Type: 
  Country: JP (occurrence: JP)
  Receive Date: 20120906
  Receipt Date: 20120918
  Transmission Date: 20130627
  Serious: Yes (Life-Threatening)
  Sender: FDA-Public Use
  Company Number: JP-ASTRAZENECA-2012SE65682

PATIENT
  Age: 13353 Day
  Sex: Female
  Weight: 49 kg

DRUGS (2)
  1. MARCAIN SPINAL [Suspect]
     Indication: SPINAL ANAESTHESIA
     Route: 037
     Dates: start: 20120816, end: 20120816
  2. CEFAZOLIN SODIUM [Suspect]
     Route: 041
     Dates: start: 20120816, end: 20120816

REACTIONS (1)
  - Anaphylactoid reaction [Recovering/Resolving]
